FAERS Safety Report 7304328-7 (Version None)
Quarter: 2011Q1

REPORT INFORMATION
  Report Type: 
  Country: None (occurrence: None)
  Receive Date: 20110221
  Receipt Date: 20110207
  Transmission Date: 20110831
  Serious: Yes (Hospitalization, Other)
  Sender: FDA-Public Use
  Company Number: US-ELI_LILLY_AND_COMPANY-US201101003918

PATIENT
  Age: 75 Year
  Sex: Female
  Weight: 104 kg

DRUGS (9)
  1. PRISTIQ [Concomitant]
     Indication: DEPRESSION
     Dates: end: 20101101
  2. JANUVIA [Concomitant]
  3. BYETTA [Suspect]
     Dosage: 10 UG, 2/D
     Route: 058
     Dates: start: 20101028, end: 20101114
  4. MICARDIS [Concomitant]
     Indication: BLOOD PRESSURE
     Dates: end: 20101101
  5. AVANDIA [Concomitant]
     Indication: TYPE 2 DIABETES MELLITUS
     Dates: end: 20101101
  6. BYETTA [Suspect]
     Indication: TYPE 2 DIABETES MELLITUS
     Dosage: 5 UG, 2/D
     Route: 058
     Dates: start: 20101014, end: 20101028
  7. LIPITOR [Concomitant]
     Indication: HYPERTRIGLYCERIDAEMIA
     Dates: start: 20070201, end: 20101101
  8. DIURETICS [Concomitant]
  9. NEXIUM [Concomitant]
     Indication: GASTROOESOPHAGEAL REFLUX DISEASE
     Dates: end: 20101101

REACTIONS (2)
  - PANCREATITIS NECROTISING [None]
  - CHOLELITHIASIS [None]
